FAERS Safety Report 6707933-1 (Version None)
Quarter: 2010Q2

REPORT INFORMATION
  Report Type: 
  Country: None (occurrence: None)
  Receive Date: 20100429
  Receipt Date: 20100420
  Transmission Date: 20101027
  Serious: Yes (Hospitalization)
  Sender: FDA-Public Use
  Company Number: 2007JP000775

PATIENT
  Age: 9 Year
  Sex: Male

DRUGS (2)
  1. PROGRAF [Suspect]
     Indication: BONE MARROW TRANSPLANT
     Dosage: 0.015 MG/KG, CONTINUOUS, IV NOS; 0.02 MG/KG, CONTINUOUS, IV NOS, IV NOS
     Route: 042
  2. PROGRAF [Suspect]
     Indication: CORD BLOOD TRANSPLANT THERAPY
     Dosage: 0.015 MG/KG, CONTINUOUS, IV NOS; 0.02 MG/KG, CONTINUOUS, IV NOS, IV NOS
     Route: 042

REACTIONS (10)
  - ASCITES [None]
  - CHRONIC GRAFT VERSUS HOST DISEASE [None]
  - CYSTITIS HAEMORRHAGIC [None]
  - ERYTHEMA [None]
  - HEPATIC FUNCTION ABNORMAL [None]
  - HERPES ZOSTER [None]
  - MENINGITIS ASEPTIC [None]
  - PLEURAL EFFUSION [None]
  - PLEURISY [None]
  - PNEUMOTHORAX [None]
